FAERS Safety Report 9401604 (Version 5)
Quarter: 2014Q1

REPORT INFORMATION
  Report Type: Report from Study
  Country: US (occurrence: US)
  Receive Date: 20130716
  Receipt Date: 20140217
  Transmission Date: 20141002
  Serious: Yes (Death, Hospitalization)
  Sender: FDA-Public Use
  Company Number: US-BIOGENIDEC-2013BI062886

PATIENT
  Age: 41 Year
  Sex: Female
  Weight: 45 kg

DRUGS (11)
  1. TYSABRI [Suspect]
     Indication: MULTIPLE SCLEROSIS
     Route: 042
     Dates: start: 20090709, end: 20130620
  2. LORAZEPAM [Concomitant]
     Indication: ANXIETY
     Route: 048
  3. BUPROPRION [Concomitant]
     Indication: DEPRESSION
     Route: 048
  4. METHENAMINE [Concomitant]
     Indication: URINARY TRACT DISORDER
     Route: 048
  5. LEVOXYL [Concomitant]
     Indication: HYPOTHYROIDISM
     Route: 048
  6. PROPANOLOL [Concomitant]
     Indication: TREMOR
     Route: 048
  7. BACLOFEN [Concomitant]
     Indication: MUSCLE SPASTICITY
     Route: 048
  8. GABAPENTIN [Concomitant]
     Indication: NEURALGIA
     Route: 048
  9. NORTRIPTYLINE [Concomitant]
     Indication: INSOMNIA
     Route: 048
  10. DIPHENYDRAMINE [Concomitant]
     Indication: INSOMNIA
     Route: 048
  11. LASIX [Concomitant]
     Indication: OEDEMA PERIPHERAL

REACTIONS (3)
  - Clostridium difficile colitis [Fatal]
  - Septic shock [Fatal]
  - Pneumonia aspiration [Fatal]
